FAERS Safety Report 8110884-1 (Version None)
Quarter: 2012Q1

REPORT INFORMATION
  Report Type: 
  Country: None (occurrence: None)
  Receive Date: 20120203
  Receipt Date: 20120127
  Transmission Date: 20120608
  Serious: Yes (Other)
  Sender: FDA-Public Use
  Company Number: US-JNJFOC-20120112960

PATIENT
  Age: 77 Year
  Sex: Male

DRUGS (4)
  1. XARELTO [Suspect]
     Indication: THROMBOSIS PROPHYLAXIS
     Route: 048
     Dates: start: 20120116
  2. FISH OIL [Concomitant]
  3. OMEPRAZOLE [Concomitant]
  4. PLAVIX [Concomitant]

REACTIONS (1)
  - VENOUS OCCLUSION [None]
